FAERS Safety Report 16051541 (Version 3)
Quarter: 2019Q3

REPORT INFORMATION
  Report Type: Report from Study
  Country: CN (occurrence: CN)
  Receive Date: 20190308
  Receipt Date: 20190823
  Transmission Date: 20191004
  Serious: Yes (Hospitalization)
  Sender: FDA-Public Use
  Company Number: CN-TAKEDA-2019TUS012100

PATIENT
  Age: 29 Year
  Sex: Male
  Weight: 45.5 kg

DRUGS (6)
  1. IRON SUCROSE [Concomitant]
     Active Substance: IRON SUCROSE
     Indication: ANAEMIA
     Dosage: 180 MILLIGRAM, QD
     Route: 042
     Dates: start: 20181205, end: 20181205
  2. IRON SUCROSE [Concomitant]
     Active Substance: IRON SUCROSE
     Dosage: 200 MILLIGRAM, QD
     Route: 042
     Dates: start: 20190122, end: 20190122
  3. MEDROL [Concomitant]
     Active Substance: METHYLPREDNISOLONE
     Indication: CROHN^S DISEASE
     Dosage: 28 MILLIGRAM, QD
     Route: 048
     Dates: start: 20190227
  4. IRON SUCROSE [Concomitant]
     Active Substance: IRON SUCROSE
     Dosage: 200 MILLIGRAM, QD
     Route: 042
     Dates: start: 20190227, end: 20190227
  5. ANSURES [Concomitant]
     Indication: CROHN^S DISEASE
     Dosage: 50 GRAM, TID
     Route: 048
     Dates: start: 20190117
  6. VEDOLIZUMAB [Suspect]
     Active Substance: VEDOLIZUMAB
     Indication: CROHN^S DISEASE
     Dosage: UNK
     Route: 042
     Dates: start: 20180424

REACTIONS (1)
  - Large intestinal stenosis [Recovering/Resolving]

NARRATIVE: CASE EVENT DATE: 20190304
